FAERS Safety Report 8095531-X (Version None)
Quarter: 2012Q1

REPORT INFORMATION
  Report Type: 
  Country: None (occurrence: None)
  Receive Date: 20120129
  Receipt Date: 20111216
  Transmission Date: 20120608
  Serious: No
  Sender: FDA-Public Use
  Company Number: US-ABBOTT-11P-163-0884314-00

PATIENT
  Age: 39 Year
  Sex: Male

DRUGS (3)
  1. CELEXA [Concomitant]
     Indication: ANXIETY
     Route: 048
  2. HUMIRA [Suspect]
     Indication: CROHN'S DISEASE
     Dates: start: 20111214
  3. NEURONTIN [Concomitant]
     Indication: PAIN
     Route: 048

REACTIONS (2)
  - INJECTION SITE SWELLING [None]
  - INJECTION SITE HAEMATOMA [None]
